FAERS Safety Report 10105066 (Version 2)
Quarter: 2014Q2

REPORT INFORMATION
  Report Type: Report from Study
  Country: IL (occurrence: IL)
  Receive Date: 20140424
  Receipt Date: 20140627
  Transmission Date: 20141212
  Serious: Yes (Hospitalization)
  Sender: FDA-Public Use
  Company Number: IL-ABBVIE-14P-082-1226261-00

PATIENT
  Sex: Female

DRUGS (7)
  1. HUMIRA [Suspect]
     Indication: CROHN^S DISEASE
     Route: 058
     Dates: start: 20131016, end: 201404
  2. HUMIRA [Suspect]
  3. AVASTIN [Concomitant]
     Indication: RETINAL VASCULAR DISORDER
  4. COUMADIN [Concomitant]
     Indication: PRODUCT USED FOR UNKNOWN INDICATION
  5. GASTRO [Concomitant]
     Indication: PRODUCT USED FOR UNKNOWN INDICATION
  6. PREDNISONE [Concomitant]
     Indication: PRODUCT USED FOR UNKNOWN INDICATION
     Dosage: STARTED WITH 60MG AND DECREASED
  7. PREDNISONE [Concomitant]

REACTIONS (3)
  - Peripheral swelling [Unknown]
  - Haemorrhoids [Unknown]
  - Pain [Unknown]
